FAERS Safety Report 24805229 (Version 2)
Quarter: 2025Q1

REPORT INFORMATION
  Report Type: Spontaneous
  Country: PT (occurrence: PT)
  Receive Date: 20250103
  Receipt Date: 20250130
  Transmission Date: 20250409
  Serious: Yes (Disabling)
  Sender: MERZ
  Company Number: None

PATIENT

DRUGS (3)
  1. XEOMIN [Suspect]
     Active Substance: INCOBOTULINUMTOXINA
     Indication: Migraine
     Dosage: 195 INTERNATIONAL UNIT
     Route: 030
     Dates: start: 20241129, end: 20241129
  2. XEOMIN [Suspect]
     Active Substance: INCOBOTULINUMTOXINA
     Indication: Myalgia
  3. INFLUENZA VIRUS VACCINE [Concomitant]
     Active Substance: INFLUENZA VIRUS VACCINE
     Dates: start: 20241129, end: 20241129

REACTIONS (5)
  - Insomnia [Recovered/Resolved]
  - Anxiety [Recovering/Resolving]
  - Tachycardia [Recovering/Resolving]
  - Muscular weakness [Not Recovered/Not Resolved]
  - Off label use [Unknown]

NARRATIVE: CASE EVENT DATE: 20241129
